FAERS Safety Report 8476670-8 (Version None)
Quarter: 2012Q2

REPORT INFORMATION
  Report Type: 
  Country: None (occurrence: None)
  Receive Date: 20120628
  Receipt Date: 20120615
  Transmission Date: 20120825
  Serious: No
  Sender: FDA-Public Use
  Company Number: US-ASTRAZENECA-2011SE12362

PATIENT
  Age: 59 Year
  Sex: Male

DRUGS (13)
  1. PROVENTIL-HFA [Concomitant]
  2. REGLAN [Concomitant]
  3. NEXIUM [Suspect]
     Indication: GASTROOESOPHAGEAL REFLUX DISEASE
     Route: 048
  4. JEVITY [Concomitant]
  5. ULTRAM [Concomitant]
  6. ZOFRAN [Concomitant]
  7. PRILOSEC [Suspect]
     Route: 048
  8. LANSOPRAZOLE SOLUTAB [Concomitant]
  9. MULTI-VITAMIN [Concomitant]
  10. GLYCOLAX [Concomitant]
  11. TOPROL-XL [Suspect]
     Route: 048
  12. CELEXA [Concomitant]
  13. VIAGRA [Concomitant]

REACTIONS (2)
  - OFF LABEL USE [None]
  - DRUG INEFFECTIVE [None]
